FAERS Safety Report 24413825 (Version 1)
Quarter: 2024Q4

REPORT INFORMATION
  Report Type: Report from Study
  Country: US (occurrence: US)
  Receive Date: 20241008
  Receipt Date: 20241008
  Transmission Date: 20250115
  Serious: No
  Sender: TG THERAPEUTICS
  Company Number: US-TG THERAPEUTICS INC.-TGT003848

PATIENT

DRUGS (6)
  1. UBLITUXIMAB [Suspect]
     Active Substance: UBLITUXIMAB
     Indication: Multiple sclerosis
     Dosage: 150 MILLIGRAM
     Route: 042
     Dates: start: 20240202, end: 20240202
  2. ADDERALL [Concomitant]
     Active Substance: AMPHETAMINE ASPARTATE\AMPHETAMINE SULFATE\DEXTROAMPHETAMINE SACCHARATE\DEXTROAMPHETAMINE SULFATE
     Indication: Fatigue
     Dosage: 10 MILLIGRAM, BID
     Route: 048
     Dates: start: 20220104
  3. PROPRANOLOL HYDROCHLORIDE [Concomitant]
     Active Substance: PROPRANOLOL HYDROCHLORIDE
     Indication: Autonomic nervous system imbalance
     Dosage: 10 MILLIGRAM, TID
     Route: 048
     Dates: start: 20231211
  4. DETROL LA [Concomitant]
     Active Substance: TOLTERODINE TARTRATE
     Indication: Product used for unknown indication
     Dosage: 4 MILLIGRAM, QD
     Dates: start: 20240111
  5. LUNESTA [Concomitant]
     Active Substance: ESZOPICLONE
     Indication: Product used for unknown indication
     Dosage: 1 MILLIGRAM, HS
     Route: 048
     Dates: start: 20240112
  6. PROMETHAZINE [Concomitant]
     Active Substance: PROMETHAZINE HYDROCHLORIDE
     Indication: Product used for unknown indication
     Dosage: 25 MILLIGRAM, QD
     Route: 048
     Dates: start: 20240111

REACTIONS (3)
  - Asthenia [Unknown]
  - Infusion related reaction [Recovered/Resolved]
  - Abdominal rigidity [Unknown]

NARRATIVE: CASE EVENT DATE: 20240202
